APPROVED DRUG PRODUCT: TRI-LO-MILI
Active Ingredient: ETHINYL ESTRADIOL; NORGESTIMATE
Strength: 0.025MG,0.025MG,0.025MG;0.18MG,0.215MG,0.25MG
Dosage Form/Route: TABLET;ORAL-28
Application: A205762 | Product #001 | TE Code: AB
Applicant: AUROBINDO PHARMA LTD
Approved: Nov 4, 2016 | RLD: No | RS: No | Type: RX